FAERS Safety Report 8887188 (Version 1)
Quarter: 2012Q4

REPORT INFORMATION
  Report Type: 
  Country: US (occurrence: US)
  Receive Date: 20121105
  Receipt Date: 20121105
  Transmission Date: 20130627
  Serious: Yes (Other)
  Sender: FDA-Public Use
  Company Number: US-PFIZER INC-2012274944

PATIENT
  Age: 52 Year
  Sex: Female
  Weight: 98.87 kg

DRUGS (3)
  1. LYRICA [Suspect]
     Indication: FIBROMYALGIA
     Dosage: 150 mg, 3x/day
     Route: 048
  2. LYRICA [Suspect]
     Indication: MUSCULOSKELETAL PAIN
  3. CYMBALTA [Concomitant]
     Dosage: 60 mg, 2x/day

REACTIONS (4)
  - Hand fracture [Unknown]
  - Fall [Unknown]
  - Memory impairment [Unknown]
  - Arthralgia [Unknown]
